FAERS Safety Report 21838410 (Version 2)
Quarter: 2023Q1

REPORT INFORMATION
  Report Type: Spontaneous
  Country: US (occurrence: US)
  Receive Date: 20230109
  Receipt Date: 20230112
  Transmission Date: 20230418
  Serious: Yes (Life-Threatening, Hospitalization, Other)
  Sender: FDA-Public Use
  Company Number: US-BRISTOL-MYERS SQUIBB COMPANY-2023-000911

PATIENT
  Age: 76 Year
  Sex: Male
  Weight: 99.6 kg

DRUGS (5)
  1. EMPLICITI [Suspect]
     Active Substance: ELOTUZUMAB
     Indication: Plasma cell myeloma refractory
     Route: 042
     Dates: start: 20220902, end: 20220923
  2. EMPLICITI [Suspect]
     Active Substance: ELOTUZUMAB
     Dosage: EVERY OTHER WEEK
     Route: 042
     Dates: start: 20221118
  3. KYPROLIS [Concomitant]
     Active Substance: CARFILZOMIB
     Indication: Plasma cell myeloma refractory
     Dosage: DAY 1
     Route: 042
     Dates: start: 20221118
  4. KYPROLIS [Concomitant]
     Active Substance: CARFILZOMIB
     Dosage: DAY 1, 8, 15Q 28 DAYS
     Route: 042
     Dates: start: 20221118
  5. DECADRON [Concomitant]
     Active Substance: DEXAMETHASONE
     Indication: Product used for unknown indication
     Dosage: ON DAY 22 Q 28 DAYS - HIGH DOSE
     Route: 048
     Dates: start: 20221118

REACTIONS (3)
  - Acute respiratory failure [Not Recovered/Not Resolved]
  - Cellulitis [Unknown]
  - Deep vein thrombosis [Unknown]

NARRATIVE: CASE EVENT DATE: 20230101
